FAERS Safety Report 4881288-X (Version None)
Quarter: 2005Q4

REPORT INFORMATION
  Report Type: 
  Country: None (occurrence: None)
  Receive Date: 20051212
  Receipt Date: 20050224
  Transmission Date: 20060501
  Serious: No
  Sender: FDA-Public Use
  Company Number: 05P-163-0292242-00

PATIENT
  Sex: 0

DRUGS (2)
  1. TARKA [Suspect]
  2. BETA-BLOCKER [Concomitant]

REACTIONS (1)
  - BLOOD PRESSURE DECREASED [None]
